FAERS Safety Report 8784489 (Version 1)
Quarter: 2012Q4

REPORT INFORMATION
  Report Type: 
  Country: DE (occurrence: DE)
  Receive Date: 20120913
  Receipt Date: 20120913
  Transmission Date: 20130627
  Serious: Yes (Hospitalization)
  Sender: FDA-Public Use
  Company Number: DE-PFIZER INC-2012221246

PATIENT
  Age: 77 Year
  Sex: Female
  Weight: 97 kg

DRUGS (11)
  1. GENOTROPIN [Suspect]
     Indication: HYPOPITUITARISM
     Dosage: 0.7 mg, 1x/day (7-WK)
     Route: 058
     Dates: start: 20030703
  2. LEVOTHYROXINE [Concomitant]
     Indication: BLOOD THYROID STIMULATING HORMONE DECREASED
     Dosage: UNK
     Dates: start: 19750101
  3. LEVOTHYROXINE [Concomitant]
     Indication: PRIMARY HYPOTHYROIDISM
  4. PREDNISOLONE [Concomitant]
     Indication: BLOOD CORTICOTROPHIN DECREASED
     Dosage: UNK
     Dates: start: 19750101
  5. PRESOMEN [Concomitant]
     Indication: BLOOD LUTEINISING HORMONE DECREASED
     Dosage: UNK
     Dates: start: 19750101
  6. PRESOMEN [Concomitant]
     Indication: BLOOD FOLLICLE STIMULATING HORMONE DECREASED
  7. PRESOMEN [Concomitant]
     Indication: HYPOGONADISM FEMALE
  8. LISINO [Concomitant]
     Indication: HYPERSENSITIVITY
     Dosage: UNK
     Dates: start: 19970228
  9. ANTRA [Concomitant]
     Indication: GASTRITIS
     Dosage: UNK
     Dates: start: 19881115
  10. ANTRA [Concomitant]
     Indication: GASTRODUODENITIS
  11. FORMOTEROL [Concomitant]
     Indication: ASTHMA
     Dosage: UNK
     Dates: start: 20050818

REACTIONS (1)
  - Arthropathy [Unknown]
